FAERS Safety Report 4539360-X (Version None)
Quarter: 2004Q4

REPORT INFORMATION
  Report Type: 
  Country: None (occurrence: None)
  Receive Date: 20041222
  Receipt Date: 20041207
  Transmission Date: 20050328
  Serious: Yes (Other)
  Sender: FDA-Public Use
  Company Number: L04-ITA-08038-01

PATIENT
  Sex: Male

DRUGS (1)
  1. CITALOPRAM [Suspect]
     Indication: SCHIZOPHRENIA
     Dosage: 100 MG

REACTIONS (2)
  - AGGRESSION [None]
  - DYSPHORIA [None]
